FAERS Safety Report 18939997 (Version 1)
Quarter: 2021Q1

REPORT INFORMATION
  Report Type: Spontaneous
  Country: US (occurrence: US)
  Receive Date: 20210224
  Receipt Date: 20210224
  Transmission Date: 20210420
  Serious: No
  Sender: FDA-Public Use
  Company Number: None

PATIENT
  Sex: Male

DRUGS (1)
  1. AMBRISENTAN 10MG [Suspect]
     Active Substance: AMBRISENTAN
     Route: 048

REACTIONS (2)
  - Oxygen saturation decreased [None]
  - Therapy interrupted [None]
